FAERS Safety Report 16786174 (Version 1)
Quarter: 2019Q3

REPORT INFORMATION
  Report Type: Spontaneous
  Country: BE (occurrence: BE)
  Receive Date: 20190909
  Receipt Date: 20190909
  Transmission Date: 20191005
  Serious: Yes (Other)
  Sender: FDA-Public Use
  Company Number: BE-PFIZER INC-2019384607

PATIENT
  Sex: Female
  Weight: 35 kg

DRUGS (2)
  1. CLINDAMYCIN HCL [Suspect]
     Active Substance: CLINDAMYCIN HYDROCHLORIDE
     Indication: EAR INFECTION
     Dosage: 3 DF, 1X/DAY
     Route: 048
  2. CIPROFLOXACINE AB [Suspect]
     Active Substance: CIPROFLOXACIN HYDROCHLORIDE
     Indication: EAR INFECTION
     Dosage: 2 DF, 1X/DAY
     Route: 048

REACTIONS (3)
  - Abdominal pain [Unknown]
  - Somnolence [Unknown]
  - Anuria [Unknown]
